FAERS Safety Report 16353078 (Version 1)
Quarter: 2019Q2

REPORT INFORMATION
  Report Type: Spontaneous
  Country: US (occurrence: US)
  Receive Date: 20190524
  Receipt Date: 20190524
  Transmission Date: 20190711
  Serious: No
  Sender: FDA-Public Use
  Company Number: US-PFIZER INC-2017204256

PATIENT
  Age: 67 Year
  Sex: Female
  Weight: 60.33 kg

DRUGS (3)
  1. LYRICA [Suspect]
     Active Substance: PREGABALIN
     Indication: NEUROPATHY PERIPHERAL
     Dosage: 125 MG, 3X/DAY(100 MG 1 TAB PO TID WITH LYRICA 25 MG TO MAKE 125 MG)
     Route: 048
  2. PREMARIN [Suspect]
     Active Substance: ESTROGENS, CONJUGATED
     Dosage: UNK
  3. VICODIN [Concomitant]
     Active Substance: ACETAMINOPHEN\HYDROCODONE BITARTRATE
     Indication: BACK DISORDER
     Dosage: UNK

REACTIONS (1)
  - Nasopharyngitis [Unknown]
